FAERS Safety Report 4428392-8 (Version None)
Quarter: 2004Q3

REPORT INFORMATION
  Report Type: 
  Country: None (occurrence: None)
  Receive Date: 20040813
  Receipt Date: 20040730
  Transmission Date: 20050211
  Serious: Yes (Death, Hospitalization)
  Sender: FDA-Public Use
  Company Number: CERZ-10518

PATIENT
  Sex: Male
  Weight: 7.88 kg

DRUGS (1)
  1. CEREZYME [Suspect]
     Indication: GAUCHER'S DISEASE
     Dosage: 90 U/KG Q2WK IV
     Route: 042
     Dates: start: 20030902, end: 20040316

REACTIONS (10)
  - CONVULSION [None]
  - GASTROOESOPHAGEAL REFLUX DISEASE [None]
  - HEPATOSPLENOMEGALY [None]
  - INTERSTITIAL LUNG DISEASE [None]
  - OPISTHOTONUS [None]
  - RESPIRATORY FAILURE [None]
  - RESPIRATORY TRACT INFECTION [None]
  - WEIGHT INCREASED [None]
  - WHEEZING [None]
  - WHITE BLOOD CELL COUNT INCREASED [None]
